FAERS Safety Report 8494531-5 (Version None)
Quarter: 2012Q3

REPORT INFORMATION
  Report Type: 
  Country: None (occurrence: None)
  Receive Date: 20120709
  Receipt Date: 20120626
  Transmission Date: 20120928
  Serious: Yes (Hospitalization, Other)
  Sender: FDA-Public Use
  Company Number: ZA-JNJFOC-20120614581

PATIENT
  Sex: Female
  Weight: 53 kg

DRUGS (15)
  1. REVELLEX [Suspect]
     Dosage: INDUCTION PHASE AT 0, 2 AND 6 WEEKS AND THEREAFTER 8 WEEKLY.
     Route: 042
     Dates: start: 20110701
  2. REVELLEX [Suspect]
     Route: 042
     Dates: start: 20120329
  3. SOLU-CORTEF [Concomitant]
     Route: 065
  4. REVELLEX [Suspect]
     Dosage: WITH AN INDUCTION PHASE AT 0, 2, 6 WEEKS AND THEREAFTER 8 WEEKLY
     Route: 042
     Dates: start: 20090101, end: 20110101
  5. PHENERGAN HCL [Concomitant]
     Route: 065
  6. REVELLEX [Suspect]
     Indication: COLITIS ULCERATIVE
     Route: 042
  7. REVELLEX [Suspect]
     Dosage: INDUCTION PHASE AT 0, 2 AND 6 WEEKS AND THEREAFTER 8 WEEKLY.
     Route: 042
     Dates: start: 20110701
  8. FOLIC ACID [Concomitant]
     Route: 065
  9. REVELLEX [Suspect]
     Route: 042
     Dates: start: 20050101, end: 20050101
  10. REVELLEX [Suspect]
     Dosage: WITH AN INDUCTION PHASE AT 0, 2, 6 WEEKS AND THEREAFTER 8 WEEKLY
     Route: 042
     Dates: start: 20090101, end: 20110101
  11. PENTASA [Concomitant]
     Indication: CROHN'S DISEASE
     Route: 048
  12. REVELLEX [Suspect]
     Route: 042
     Dates: start: 20050101, end: 20050101
  13. BUSCOPAN [Concomitant]
     Indication: ABDOMINAL PAIN UPPER
     Route: 065
  14. REVELLEX [Suspect]
     Route: 042
     Dates: start: 20120329
  15. REVELLEX [Suspect]
     Indication: CROHN'S DISEASE
     Route: 042

REACTIONS (5)
  - PSORIATIC ARTHROPATHY [None]
  - COLITIS ULCERATIVE [None]
  - LUNG INFECTION [None]
  - CROHN'S DISEASE [None]
  - PUSTULAR PSORIASIS [None]
